FAERS Safety Report 7854432-X (Version None)
Quarter: 2011Q4

REPORT INFORMATION
  Report Type: 
  Country: None (occurrence: None)
  Receive Date: 20111026
  Receipt Date: 20111017
  Transmission Date: 20120403
  Serious: Yes (Hospitalization, Other)
  Sender: FDA-Public Use
  Company Number: US-ASTRAZENECA-2011SE22029

PATIENT
  Age: 54 Year
  Sex: Female
  Weight: 65.3 kg

DRUGS (26)
  1. DEPAKOTE [Concomitant]
     Indication: EPILEPSY
     Route: 048
  2. CLONAZEPAM [Concomitant]
  3. ZONISANIDE [Concomitant]
  4. ZENOGRAN [Concomitant]
     Indication: EPILEPSY
     Route: 048
  5. SEROQUEL [Suspect]
     Indication: BIPOLAR DISORDER
     Route: 048
     Dates: start: 19930101
  6. VALIUM [Concomitant]
     Indication: ANXIETY
     Route: 048
  7. TANZANADINE [Concomitant]
     Dosage: THREE TIMES A DAY
     Route: 048
  8. ZANAFLEX [Concomitant]
     Indication: EPILEPSY
     Route: 048
  9. NEXIUM [Suspect]
     Indication: ULCER
     Route: 048
  10. FOLIC ACID [Concomitant]
     Indication: CARDIAC DISORDER
     Route: 048
  11. POTASSIUM CHLORIDE [Concomitant]
  12. PRISTIQ [Concomitant]
     Indication: NEUROSIS
     Route: 048
  13. SEROQUEL [Suspect]
     Indication: SLEEP DISORDER
     Route: 048
     Dates: start: 19930101
  14. DEPAKOTE [Concomitant]
     Route: 048
  15. VIMPAT [Concomitant]
     Indication: EPILEPSY
     Dosage: 300 MG, TWO TIMES A DAY
     Route: 048
  16. ZINC [Concomitant]
     Indication: ALOPECIA
     Route: 048
  17. ZENOGRAN [Concomitant]
     Indication: HEADACHE
     Route: 048
  18. SEROQUEL [Suspect]
     Indication: DEPRESSION
     Route: 048
     Dates: start: 19930101
  19. ATENOLOL [Concomitant]
     Indication: CARDIAC DISORDER
     Route: 048
  20. LASIX [Concomitant]
  21. VIMPAT [Concomitant]
     Route: 048
  22. SIMVASTATIN [Concomitant]
  23. ZANTAC [Concomitant]
     Dosage: 150 MG, TWO TIMES A DAY
     Route: 048
  24. EFFEXOR [Concomitant]
  25. HYDROXYZINE [Concomitant]
  26. ZANAFLEX [Concomitant]
     Indication: HEADACHE
     Route: 048

REACTIONS (20)
  - MYOCARDIAL INFARCTION [None]
  - LIGAMENT RUPTURE [None]
  - IMPAIRED DRIVING ABILITY [None]
  - BIPOLAR DISORDER [None]
  - SCHIZOPHRENIA, PARANOID TYPE [None]
  - HALLUCINATION, AUDITORY [None]
  - VOMITING [None]
  - CLAVICLE FRACTURE [None]
  - GASTRIC ULCER [None]
  - WEIGHT DECREASED [None]
  - INSOMNIA [None]
  - WRONG TECHNIQUE IN DRUG USAGE PROCESS [None]
  - DEPRESSION [None]
  - FALL [None]
  - UPPER LIMB FRACTURE [None]
  - TENDON RUPTURE [None]
  - DRUG DOSE OMISSION [None]
  - CARDIAC DISORDER [None]
  - INCORRECT DOSE ADMINISTERED [None]
  - INAPPROPRIATE SCHEDULE OF DRUG ADMINISTRATION [None]
